FAERS Safety Report 13813083 (Version 1)
Quarter: 2017Q3

REPORT INFORMATION
  Report Type: Spontaneous
  Country: GB (occurrence: GB)
  Receive Date: 20170729
  Receipt Date: 20170729
  Transmission Date: 20171127
  Serious: Yes (Disabling)
  Sender: FDA-Public Use
  Company Number: GB-ACCORD-056360

PATIENT
  Age: 81 Year
  Sex: Male
  Weight: 83 kg

DRUGS (12)
  1. TADALAFIL [Concomitant]
     Active Substance: TADALAFIL
     Dosage: AS DIRECTED
     Dates: start: 20161111
  2. SIMVASTATIN. [Suspect]
     Active Substance: SIMVASTATIN
     Indication: PRODUCT USED FOR UNKNOWN INDICATION
     Dosage: ALSO RECEIVED FROM 11-NOV-2016 TO 01-JUN-2017
     Route: 048
     Dates: start: 20170710, end: 20170710
  3. BENDROFLUMETHIAZIDE [Concomitant]
     Active Substance: BENDROFLUMETHIAZIDE
     Dosage: EACH MORNING
     Dates: start: 20161111, end: 20170710
  4. AMLODIPINE [Concomitant]
     Active Substance: AMLODIPINE BESYLATE
     Dates: start: 20161111
  5. BISOPROLOL [Concomitant]
     Active Substance: BISOPROLOL
     Dates: start: 20161111
  6. CALCEOS [Concomitant]
     Active Substance: CALCIUM CARBONATE\CHOLECALCIFEROL
     Dates: start: 20161111
  7. SOLIFENACIN/SOLIFENACIN SUCCINATE [Concomitant]
     Dates: start: 20161111
  8. METFORMIN [Concomitant]
     Active Substance: METFORMIN HYDROCHLORIDE
     Dates: start: 20161111
  9. LOSARTAN. [Concomitant]
     Active Substance: LOSARTAN
     Dates: start: 20161111
  10. MACROGOL/MACROGOL STEARATE [Concomitant]
     Dosage: ONE OR TWO SACHETS DAILY
     Dates: start: 20161111
  11. PHENYTOIN. [Concomitant]
     Active Substance: PHENYTOIN
     Dosage: IN THE MORNING
     Dates: start: 20161111
  12. SPIRONOLACTONE. [Concomitant]
     Active Substance: SPIRONOLACTONE
     Dosage: ONE TABLET DAILY FOR 1 WEEK, INCREASE TO 2 TABL...
     Dates: start: 20170710

REACTIONS (1)
  - Hypoaesthesia [Recovered/Resolved]

NARRATIVE: CASE EVENT DATE: 20170710
